FAERS Safety Report 14639366 (Version 1)
Quarter: 2018Q1

REPORT INFORMATION
  Report Type: Spontaneous
  Country: FR (occurrence: FR)
  Receive Date: 20180315
  Receipt Date: 20180315
  Transmission Date: 20180509
  Serious: Yes (Other)
  Sender: FDA-Public Use
  Company Number: FR-MERCK KGAA-2043775

PATIENT
  Age: 70 Year
  Sex: Male

DRUGS (2)
  1. NOVOTHYROX [Suspect]
     Active Substance: LEVOTHYROXINE SODIUM
     Dates: start: 20170825
  2. NOVOTHYROX [Suspect]
     Active Substance: LEVOTHYROXINE SODIUM
     Indication: PRODUCT USED FOR UNKNOWN INDICATION

REACTIONS (22)
  - Chills [None]
  - Asocial behaviour [None]
  - Loss of personal independence in daily activities [None]
  - Emotional disorder [None]
  - Balance disorder [None]
  - Stress [None]
  - Headache [None]
  - Weight decreased [None]
  - Vomiting [None]
  - Nausea [None]
  - Fatigue [None]
  - Anxiety [None]
  - Irritability [None]
  - General physical health deterioration [None]
  - Decreased interest [None]
  - Dizziness [None]
  - Hyperhidrosis [None]
  - Blood thyroid stimulating hormone decreased [None]
  - Blood pressure increased [None]
  - Malaise [None]
  - Dependent personality disorder [None]
  - Emotional distress [None]

NARRATIVE: CASE EVENT DATE: 201705
